FAERS Safety Report 6972829-7 (Version None)
Quarter: 2010Q3

REPORT INFORMATION
  Report Type: 
  Country: None (occurrence: None)
  Receive Date: 20100907
  Receipt Date: 20100830
  Transmission Date: 20110219
  Serious: Yes (Hospitalization)
  Sender: FDA-Public Use
  Company Number: 2010SP002375

PATIENT
  Age: 42 Year
  Sex: Male
  Weight: 89.8 kg

DRUGS (3)
  1. CICLESONIDE HFA (160 UG) [Suspect]
     Indication: RHINITIS PERENNIAL
     Dosage: 160 UG;QD;INHALATION
     Route: 055
     Dates: start: 20100426
  2. PRILOSEC [Concomitant]
  3. LOVASTATIN [Concomitant]

REACTIONS (1)
  - ATRIAL FLUTTER [None]
